FAERS Safety Report 5369689-7 (Version None)
Quarter: 2007Q2

REPORT INFORMATION
  Report Type: 
  Country: None (occurrence: None)
  Receive Date: 20070621
  Receipt Date: 20070611
  Transmission Date: 20071010
  Serious: Yes (Disabling, Other)
  Sender: FDA-Public Use
  Company Number: CERZ-11489

PATIENT
  Sex: Female
  Weight: 70 kg

DRUGS (3)
  1. CEREZYME [Suspect]
     Indication: GAUCHER'S DISEASE
     Dosage: 30 U/KG QWK IV
     Route: 042
  2. CEREZYME [Suspect]
     Indication: GAUCHER'S DISEASE
     Dosage: 4600 UNITS QWK IV
     Route: 042
     Dates: start: 20011109
  3. CEREZYME [Suspect]
     Indication: GAUCHER'S DISEASE
     Dates: end: 19990101

REACTIONS (15)
  - ARTHRALGIA [None]
  - BACK PAIN [None]
  - BONE MARROW FAILURE [None]
  - CATHETER RELATED COMPLICATION [None]
  - FEMORAL NECK FRACTURE [None]
  - FLANK PAIN [None]
  - HIP FRACTURE [None]
  - MUSCLE SPASMS [None]
  - MUSCULAR WEAKNESS [None]
  - MUSCULOSKELETAL PAIN [None]
  - OSTEOARTHRITIS [None]
  - OSTEOCHONDROSIS [None]
  - OSTEONECROSIS [None]
  - SKIN ULCER [None]
  - THROMBOSIS [None]
